FAERS Safety Report 20697026 (Version 1)
Quarter: 2022Q2

REPORT INFORMATION
  Report Type: Spontaneous
  Country: JP (occurrence: JP)
  Receive Date: 20220411
  Receipt Date: 20220411
  Transmission Date: 20220721
  Serious: Yes (Death)
  Sender: FDA-Public Use
  Company Number: JP-NOVOPROD-907149

PATIENT
  Age: 3 Decade
  Sex: Male
  Weight: 76.5 kg

DRUGS (1)
  1. NOVOLIN R [Suspect]
     Active Substance: INSULIN HUMAN
     Indication: Type 1 diabetes mellitus
     Dosage: UNK
     Route: 058

REACTIONS (4)
  - Circulatory collapse [Fatal]
  - Completed suicide [Fatal]
  - Hypoglycaemia [Fatal]
  - Drug abuse [Fatal]
